FAERS Safety Report 12957398 (Version 1)
Quarter: 2016Q4

REPORT INFORMATION
  Report Type: Report from Study
  Country: US (occurrence: US)
  Receive Date: 20161119
  Receipt Date: 20161119
  Transmission Date: 20170207
  Serious: Yes (Other)
  Sender: FDA-Public Use
  Company Number: US-AMGEN-USASL2016161855

PATIENT
  Age: 60 Year
  Sex: Female

DRUGS (1)
  1. ENBREL [Suspect]
     Active Substance: ETANERCEPT
     Indication: PRODUCT USED FOR UNKNOWN INDICATION
     Dosage: UNK
     Route: 065

REACTIONS (8)
  - Pneumonia [Unknown]
  - Injection site pain [Unknown]
  - Nausea [Unknown]
  - Oral candidiasis [Unknown]
  - Injection site reaction [Recovering/Resolving]
  - Vomiting [Unknown]
  - Alopecia [Unknown]
  - Pain in extremity [Unknown]
